FAERS Safety Report 6812114-7 (Version None)
Quarter: 2010Q3

REPORT INFORMATION
  Report Type: 
  Country: None (occurrence: None)
  Receive Date: 20100701
  Receipt Date: 20090814
  Transmission Date: 20110219
  Serious: No
  Sender: FDA-Public Use
  Company Number: US-ABBOTT-09P-163-0592737-00

PATIENT

DRUGS (3)
  1. NORVIR [Suspect]
     Indication: HIV INFECTION
  2. NORVIR [Suspect]
     Indication: ACQUIRED IMMUNODEFICIENCY SYNDROME
  3. REYATAZ [Suspect]
     Indication: PRODUCT USED FOR UNKNOWN INDICATION

REACTIONS (1)
  - ANAEMIA [None]
